FAERS Safety Report 5919156-4 (Version None)
Quarter: 2008Q4

REPORT INFORMATION
  Report Type: 
  Country: None (occurrence: None)
  Receive Date: 20081015
  Receipt Date: 20081008
  Transmission Date: 20090506
  Serious: Yes (Hospitalization)
  Sender: FDA-Public Use
  Company Number: US-AVENTIS-200816682US

PATIENT
  Age: 76 Year
  Sex: Male

DRUGS (2)
  1. LANTUS [Suspect]
     Indication: DIABETES MELLITUS
     Dosage: DOSE: UNK
     Route: 058
     Dates: start: 20070101
  2. METFORMIN [Concomitant]
     Indication: DIABETES MELLITUS
     Dosage: DOSE: UNK
     Dates: start: 20070101

REACTIONS (5)
  - FLUID OVERLOAD [None]
  - GENERALISED OEDEMA [None]
  - HAEMODIALYSIS [None]
  - RENAL FAILURE [None]
  - TREATMENT NONCOMPLIANCE [None]
